FAERS Safety Report 7785586-1 (Version None)
Quarter: 2011Q3

REPORT INFORMATION
  Report Type: 
  Country: None (occurrence: None)
  Receive Date: 20110929
  Receipt Date: 20110919
  Transmission Date: 20111222
  Serious: Yes (Hospitalization)
  Sender: FDA-Public Use
  Company Number: US-BAYER-2011-052573

PATIENT
  Age: 23 Year
  Sex: Female
  Weight: 108.84 kg

DRUGS (4)
  1. YASMIN [Suspect]
     Indication: HYPERTRICHOSIS
  2. YASMIN [Suspect]
     Indication: ACNE
  3. YASMIN [Suspect]
     Indication: DYSMENORRHOEA
  4. YASMIN [Suspect]
     Indication: CONTRACEPTION
     Dosage: UNK
     Dates: start: 20040101, end: 20051201

REACTIONS (4)
  - DEEP VEIN THROMBOSIS [None]
  - PULMONARY EMBOLISM [None]
  - PAIN [None]
  - THROMBOSIS [None]
